FAERS Safety Report 16116603 (Version 1)
Quarter: 2019Q1

REPORT INFORMATION
  Report Type: Spontaneous
  Country: PL (occurrence: PL)
  Receive Date: 20190326
  Receipt Date: 20190326
  Transmission Date: 20190418
  Serious: Yes (Hospitalization)
  Sender: FDA-Public Use
  Company Number: PL-TEVA-2019-PL-1026987

PATIENT
  Age: 60 Year
  Sex: Female

DRUGS (1)
  1. TENOFOVIR TEVA [Suspect]
     Active Substance: TENOFOVIR
     Indication: HEPATITIS B
     Dosage: 1 DOSAGE FORMS DAILY;
     Route: 065
     Dates: start: 201810

REACTIONS (3)
  - Haemoglobin decreased [Not Recovered/Not Resolved]
  - Asthenia [Not Recovered/Not Resolved]
  - Platelet count decreased [Not Recovered/Not Resolved]

NARRATIVE: CASE EVENT DATE: 201810
